FAERS Safety Report 5246405-0 (Version None)
Quarter: 2007Q1

REPORT INFORMATION
  Report Type: 
  Country: None (occurrence: None)
  Receive Date: 20070226
  Receipt Date: 20070215
  Transmission Date: 20070707
  Serious: Yes (Death, Life-Threatening)
  Sender: FDA-Public Use
  Company Number: FR-JNJFOC-20070204114

PATIENT
  Age: 38 Year
  Sex: Male
  Weight: 58 kg

DRUGS (4)
  1. HALDOL [Suspect]
     Indication: SCHIZOPHRENIA
     Route: 030
  2. SOLIAN [Suspect]
     Indication: SCHIZOPHRENIA
     Route: 048
  3. REBETOL [Suspect]
     Indication: UNEVALUABLE EVENT
     Route: 048
  4. VIRAFERONPEG [Suspect]
     Indication: UNEVALUABLE EVENT
     Route: 058

REACTIONS (2)
  - MALAISE [None]
  - MYOCARDIAL INFARCTION [None]
